FAERS Safety Report 17809798 (Version 7)
Quarter: 2020Q3

REPORT INFORMATION
  Report Type: Report from Study
  Country: US (occurrence: US)
  Receive Date: 20200521
  Receipt Date: 20200729
  Transmission Date: 20201102
  Serious: Yes (Hospitalization, Other)
  Sender: FDA-Public Use
  Company Number: NVSC2020US137949

PATIENT
  Age: 20 Year
  Sex: Male
  Weight: 50.3 kg

DRUGS (5)
  1. ADAKVEO [Suspect]
     Active Substance: CRIZANLIZUMAB-TMCA
     Dosage: 245 MG, UNKNOWN
     Route: 042
     Dates: end: 20200615
  2. DULCOLAX NOS [Concomitant]
     Active Substance: BISACODYL OR DOCUSATE SODIUM
     Indication: CONSTIPATION
     Dosage: UNK
     Route: 065
  3. ADAKVEO [Suspect]
     Active Substance: CRIZANLIZUMAB-TMCA
     Dosage: 10 MG, UNKNOWN
     Route: 042
  4. ADAKVEO [Suspect]
     Active Substance: CRIZANLIZUMAB-TMCA
     Indication: SICKLE CELL ANAEMIA WITH CRISIS
     Dosage: 5 MG, OTHER (WEEK 0 AND 2, THEN EVERY 4 WEEKS)
     Route: 042
  5. MIRALAX [Concomitant]
     Active Substance: POLYETHYLENE GLYCOL 3350
     Indication: CONSTIPATION
     Dosage: UNK
     Route: 065

REACTIONS (11)
  - Abdominal distension [Unknown]
  - Dizziness [Unknown]
  - Gait disturbance [Unknown]
  - Blood bilirubin increased [Unknown]
  - Sickle cell anaemia with crisis [Recovered/Resolved]
  - Condition aggravated [Recovered/Resolved]
  - Arthralgia [Unknown]
  - Blood alkaline phosphatase increased [Unknown]
  - Pain [Unknown]
  - Aspartate aminotransferase increased [Unknown]
  - Ileus [Unknown]

NARRATIVE: CASE EVENT DATE: 2019
